FAERS Safety Report 8546434-5 (Version None)
Quarter: 2012Q3

REPORT INFORMATION
  Report Type: 
  Country: None (occurrence: None)
  Receive Date: 20120727
  Receipt Date: 20120126
  Transmission Date: 20120928
  Serious: No
  Sender: FDA-Public Use
  Company Number: US-ASTRAZENECA-2012SE01666

PATIENT

DRUGS (3)
  1. SEROQUEL XR [Suspect]
     Dosage: MORE THAN 100 MG
     Route: 048
  2. ANTIDEPRESSANT [Concomitant]
  3. SEROQUEL XR [Suspect]
     Indication: ADJUVANT THERAPY
     Route: 048

REACTIONS (1)
  - ADVERSE EVENT [None]
